FAERS Safety Report 6821174-9 (Version None)
Quarter: 2010Q3

REPORT INFORMATION
  Report Type: 
  Country: None (occurrence: None)
  Receive Date: 20100707
  Receipt Date: 20080109
  Transmission Date: 20110219
  Serious: No
  Sender: FDA-Public Use
  Company Number: US-PFIZER INC-2008003210

PATIENT
  Age: 49 Year
  Sex: Male
  Weight: 90.72 kg

DRUGS (3)
  1. ZOLOFT [Suspect]
     Dates: start: 20061019
  2. SERTRALINE HCL [Suspect]
  3. METHADONE [Suspect]

REACTIONS (1)
  - DRUG SCREEN FALSE POSITIVE [None]
